FAERS Safety Report 5323457-0 (Version None)
Quarter: 2007Q2

REPORT INFORMATION
  Report Type: 
  Country: None (occurrence: None)
  Receive Date: 20070514
  Receipt Date: 20070502
  Transmission Date: 20071010
  Serious: Yes (Hospitalization)
  Sender: FDA-Public Use
  Company Number: PHRM2007FR01380

PATIENT
  Age: 41 Year
  Sex: Male
  Weight: 78 kg

DRUGS (4)
  1. TRILEPTAL [Suspect]
     Dosage: 2 DF/DAY
     Route: 048
  2. DEPAKENE [Suspect]
     Dosage: 4 DF/DAY
     Route: 048
  3. RIVOTRIL [Suspect]
     Dosage: 2 MG, QD
     Route: 048
     Dates: end: 20070316
  4. VALIUM [Suspect]
     Dosage: 5 DF/DAY
     Route: 048

REACTIONS (6)
  - BLOOD SMEAR TEST ABNORMAL [None]
  - EPILEPSY [None]
  - LEUKOCYTOSIS [None]
  - PLATELET ANISOCYTOSIS [None]
  - PLATELET MORPHOLOGY ABNORMAL [None]
  - THROMBOCYTHAEMIA [None]
